FAERS Safety Report 5294015-1 (Version None)
Quarter: 2007Q1

REPORT INFORMATION
  Report Type: 
  Country: None (occurrence: None)
  Receive Date: 20070116
  Receipt Date: 20060328
  Transmission Date: 20070707
  Serious: Yes (Other)
  Sender: FDA-Public Use
  Company Number: HQWYE703811OCT04

PATIENT
  Age: 52 Year
  Sex: Female
  Weight: 88.08 kg

DRUGS (4)
  1. PREMPRO [Suspect]
     Indication: HOT FLUSH
  2. PREMARIN [Suspect]
     Indication: HOT FLUSH
  3. ZOCOR [Concomitant]
  4. ASPIRIN [Concomitant]

REACTIONS (1)
  - OVARIAN CANCER METASTATIC [None]
